FAERS Safety Report 5454342-1 (Version None)
Quarter: 2007Q3

REPORT INFORMATION
  Report Type: 
  Country: None (occurrence: None)
  Receive Date: 20070917
  Receipt Date: 20070531
  Transmission Date: 20080115
  Serious: Yes (Other)
  Sender: FDA-Public Use
  Company Number: US-ASTRAZENECA-2006UW11812

PATIENT
  Sex: Female
  Weight: 50 kg

DRUGS (5)
  1. SEROQUEL [Suspect]
     Indication: ANXIETY
     Dosage: 75MG-300MG
     Route: 048
     Dates: start: 20041227
  2. SEROQUEL [Suspect]
     Indication: DEPRESSION
     Dosage: 75MG-300MG
     Route: 048
     Dates: start: 20041227
  3. SEROQUEL [Suspect]
     Indication: BIPOLAR DISORDER
     Dosage: 75MG-300MG
     Route: 048
     Dates: start: 20041227
  4. ZYPREXA [Suspect]
  5. RISPERDAL [Concomitant]

REACTIONS (1)
  - PANCREATITIS [None]
